FAERS Safety Report 7364120-4 (Version None)
Quarter: 2011Q1

REPORT INFORMATION
  Report Type: 
  Country: None (occurrence: None)
  Receive Date: 20110321
  Receipt Date: 20110316
  Transmission Date: 20110831
  Serious: Yes (Death)
  Sender: FDA-Public Use
  Company Number: PHHO2011US04895

PATIENT
  Sex: Female
  Weight: 90.703 kg

DRUGS (7)
  1. NORVASC [Concomitant]
  2. LISINOPRIL [Concomitant]
  3. EXFORGE [Concomitant]
  4. FEMARA [Suspect]
     Indication: BREAST CANCER
     Dosage: 2.5 MG, QD
     Route: 048
     Dates: start: 20071012
  5. LORTAB [Concomitant]
  6. TOPROL-XL [Concomitant]
  7. ASPIRIN [Concomitant]

REACTIONS (1)
  - DEATH [None]
